FAERS Safety Report 15826849 (Version 1)
Quarter: 2019Q1

REPORT INFORMATION
  Report Type: Spontaneous
  Country: CA (occurrence: CA)
  Receive Date: 20190115
  Receipt Date: 20190115
  Transmission Date: 20190417
  Serious: Yes (Other)
  Sender: FDA-Public Use
  Company Number: CA-PFIZER INC-2018189979

PATIENT
  Age: 57 Year
  Sex: Female

DRUGS (16)
  1. IBRANCE [Suspect]
     Active Substance: PALBOCICLIB
     Indication: BREAST CANCER METASTATIC
     Dosage: 125 MG, 1X/DAY (FOR 7 DAYS AND OFF FOR 14 DAYS)
     Route: 048
     Dates: start: 20180514, end: 20180603
  2. LETROZOLE. [Concomitant]
     Active Substance: LETROZOLE
     Dosage: 25 MG, UNK
     Dates: start: 20181101
  3. LORAZEPAM. [Concomitant]
     Active Substance: LORAZEPAM
     Dosage: 1 MG, UNK
  4. VITAMIN C [Concomitant]
     Active Substance: ASCORBIC ACID
     Dosage: UNK
  5. BUPIVACAINE. [Concomitant]
     Active Substance: BUPIVACAINE
     Dosage: UNK, CYCLIC (EVERY 3  MONTHS)
  6. LETROZOLE. [Concomitant]
     Active Substance: LETROZOLE
     Dosage: 25 MG, UNK
     Dates: start: 20180504, end: 20181026
  7. VITAMIN D [Concomitant]
     Active Substance: CHOLECALCIFEROL
     Dosage: UNK
  8. HYDROMORPHONE [Concomitant]
     Active Substance: HYDROMORPHONE
     Dosage: UNK, AS NEEDED
  9. TAMOXIFEN [Concomitant]
     Active Substance: TAMOXIFEN
     Dosage: UNK
  10. KETOROLAC [Concomitant]
     Active Substance: KETOROLAC\KETOROLAC TROMETHAMINE
     Dosage: UNK
  11. IBRANCE [Suspect]
     Active Substance: PALBOCICLIB
     Dosage: 100 MG, DAILY (FOR 7 DAYS AND OFF FOR 14 DAYS)
     Dates: start: 20180620, end: 20181019
  12. FLUVASTATIN [Concomitant]
     Active Substance: FLUVASTATIN SODIUM
     Dosage: 4 MG, UNK
  13. PALAFER [Concomitant]
     Active Substance: FERROUS FUMARATE
     Dosage: UNK, AS NEEDED
  14. CYCLOBENZAPRINE HCL [Concomitant]
     Active Substance: CYCLOBENZAPRINE HYDROCHLORIDE
     Dosage: UNK, AS NEEDED
  15. TAMOXIFEN [Concomitant]
     Active Substance: TAMOXIFEN
     Dosage: UNK
     Dates: start: 201012, end: 20180503
  16. MULTIVITAMIN [ASCORBIC ACID;BIOTIN;CALCIUM PANTOTHENATE;CYANOCOBALAMIN [Concomitant]
     Active Substance: VITAMINS
     Dosage: UNK

REACTIONS (10)
  - Haemorrhagic diathesis [Unknown]
  - Diarrhoea [Recovered/Resolved]
  - Dyspepsia [Recovered/Resolved]
  - Epistaxis [Unknown]
  - Malaise [Recovered/Resolved]
  - Fatigue [Recovering/Resolving]
  - Paraesthesia oral [Unknown]
  - Pyrexia [Recovering/Resolving]
  - Neutropenia [Unknown]
  - Gastric disorder [Recovered/Resolved]

NARRATIVE: CASE EVENT DATE: 2018
